FAERS Safety Report 10370350 (Version 1)
Quarter: 2014Q3

REPORT INFORMATION
  Report Type: Spontaneous
  Country: US (occurrence: None)
  Receive Date: 20140807
  Receipt Date: 20140807
  Transmission Date: 20150326
  Serious: Yes (Death)
  Sender: FDA-Public Use
  Company Number: None

PATIENT
  Age: 52 Year
  Sex: Male

DRUGS (1)
  1. TEMOZOLOMIDE [Suspect]
     Active Substance: TEMOZOLOMIDE
     Indication: BRAIN NEOPLASM MALIGNANT
     Dosage: 2 QD ORAL
     Route: 048
     Dates: start: 20140522, end: 20140805

REACTIONS (2)
  - Malignant neoplasm progression [None]
  - Brain neoplasm malignant [None]

NARRATIVE: CASE EVENT DATE: 20140806
